FAERS Safety Report 9571154 (Version 1)
Quarter: 2013Q4

REPORT INFORMATION
  Report Type: Spontaneous
  Country: US (occurrence: US)
  Receive Date: 20131001
  Receipt Date: 20131001
  Transmission Date: 20140711
  Serious: No
  Sender: FDA-Public Use
  Company Number: US-009507513-1309USA013538

PATIENT
  Age: 3 Year
  Sex: 0

DRUGS (2)
  1. SINGULAIR [Suspect]
     Dosage: 5 MG, QD
     Route: 048
     Dates: start: 20120323, end: 20130925
  2. SINGULAIR [Suspect]
     Dosage: 4 MG, QD
     Route: 048
     Dates: start: 20130925

REACTIONS (1)
  - Overdose [Unknown]
